FAERS Safety Report 16098944 (Version 1)
Quarter: 2019Q1

REPORT INFORMATION
  Report Type: Spontaneous
  Country: US (occurrence: US)
  Receive Date: 20190321
  Receipt Date: 20190321
  Transmission Date: 20190418
  Serious: No
  Sender: FDA-Public Use
  Company Number: US-PFIZER INC-2019107462

PATIENT
  Age: 49 Year
  Sex: Female
  Weight: 46.71 kg

DRUGS (3)
  1. PRISTIQ EXTENDED-RELEASE [Suspect]
     Active Substance: DESVENLAFAXINE SUCCINATE
     Indication: OBSESSIVE-COMPULSIVE DISORDER
  2. PRISTIQ EXTENDED-RELEASE [Suspect]
     Active Substance: DESVENLAFAXINE SUCCINATE
     Indication: DEPRESSION
     Dosage: 25 MG, UNK
  3. PRISTIQ EXTENDED-RELEASE [Suspect]
     Active Substance: DESVENLAFAXINE SUCCINATE
     Indication: ANXIETY
     Dosage: 50 MG, 1X/DAY
     Route: 048
     Dates: start: 20160622, end: 20160622

REACTIONS (5)
  - Nervousness [Recovered/Resolved]
  - Bruxism [Recovered/Resolved]
  - Disturbance in attention [Recovered/Resolved]
  - Muscle tightness [Recovered/Resolved]
  - Intercepted product prescribing error [Unknown]

NARRATIVE: CASE EVENT DATE: 20160622
